FAERS Safety Report 12642874 (Version 2)
Quarter: 2016Q3

REPORT INFORMATION
  Report Type: Report from Study
  Country: AU (occurrence: AU)
  Receive Date: 20160811
  Receipt Date: 20160812
  Transmission Date: 20161109
  Serious: Yes (Death, Hospitalization)
  Sender: FDA-Public Use
  Company Number: AU-ROCHE-1723955

PATIENT
  Age: 55 Year
  Sex: Male

DRUGS (17)
  1. PANADEINE (AUSTRALIA) [Concomitant]
     Indication: RADICULOPATHY
  2. FOLIC ACID. [Concomitant]
     Active Substance: FOLIC ACID
     Indication: RHEUMATOID ARTHRITIS
     Route: 065
     Dates: start: 20141218
  3. ADALAT [Concomitant]
     Active Substance: NIFEDIPINE
     Indication: HYPERTENSION
     Route: 065
     Dates: start: 20141218
  4. ACLASTA [Concomitant]
     Active Substance: ZOLEDRONIC ACID
     Indication: FRACTURE
  5. NAPROSYN [Concomitant]
     Active Substance: NAPROXEN
     Indication: RHEUMATOID ARTHRITIS
     Route: 065
     Dates: start: 20140505
  6. ACTEMRA [Suspect]
     Active Substance: TOCILIZUMAB
     Route: 042
     Dates: start: 20160310
  7. PREDNISOLONE. [Concomitant]
     Active Substance: PREDNISOLONE
     Indication: RHEUMATOID ARTHRITIS
     Route: 065
     Dates: start: 20160621
  8. PANADEINE (AUSTRALIA) [Concomitant]
     Indication: SPINAL OSTEOARTHRITIS
     Dosage: 1 TABLET
     Route: 065
  9. PANTOPRAZOLE [Concomitant]
     Active Substance: PANTOPRAZOLE SODIUM
     Route: 065
     Dates: start: 20141218
  10. ACTEMRA [Suspect]
     Active Substance: TOCILIZUMAB
     Route: 042
     Dates: start: 20151007
  11. METHOTREXATE. [Concomitant]
     Active Substance: METHOTREXATE
     Indication: RHEUMATOID ARTHRITIS
     Dosage: 3 TABLETS, WEEKLY
     Route: 065
  12. ACLASTA [Concomitant]
     Active Substance: ZOLEDRONIC ACID
     Indication: OSTEOPOROSIS
     Dosage: 5 MG/100ML (6 MG ANNUALLY
     Route: 065
     Dates: start: 20160621
  13. ARAVA [Concomitant]
     Active Substance: LEFLUNOMIDE
     Indication: RHEUMATOID ARTHRITIS
     Route: 065
     Dates: start: 20160621
  14. PLAQUENIL [Concomitant]
     Active Substance: HYDROXYCHLOROQUINE SULFATE
     Indication: RHEUMATOID ARTHRITIS
     Dosage: 1 TABLET, BD.
     Route: 065
     Dates: start: 20160621
  15. ACTEMRA [Suspect]
     Active Substance: TOCILIZUMAB
     Indication: RHEUMATOID ARTHRITIS
     Route: 042
     Dates: start: 20150611
  16. VENTOLIN [Concomitant]
     Active Substance: ALBUTEROL SULFATE
     Dosage: 200 DOSES
     Route: 065
     Dates: start: 20140128
  17. METHOTREXATE. [Concomitant]
     Active Substance: METHOTREXATE
     Dosage: 20 MG, WEEKLY
     Route: 065
     Dates: start: 20141218

REACTIONS (3)
  - Herpes zoster [Recovered/Resolved]
  - Lower respiratory tract infection [Unknown]
  - Acute myocardial infarction [Fatal]

NARRATIVE: CASE EVENT DATE: 20160306
